FAERS Safety Report 11483649 (Version 1)
Quarter: 2015Q3

REPORT INFORMATION
  Report Type: Spontaneous
  Country: US (occurrence: US)
  Receive Date: 20150903
  Receipt Date: 20150903
  Transmission Date: 20151125
  Serious: No
  Sender: FDA-Public Use
  Company Number: US-ELI_LILLY_AND_COMPANY-US201207004972

PATIENT
  Age: 75 Year
  Sex: Male

DRUGS (7)
  1. SODIUM [Concomitant]
     Active Substance: SODIUM
     Indication: HIATUS HERNIA
  2. CYMBALTA [Suspect]
     Active Substance: DULOXETINE HYDROCHLORIDE
     Dosage: 30MG 1 AND 1/2 CAPSULES DAILY
     Dates: start: 201206
  3. IMITREX [Concomitant]
     Active Substance: SUMATRIPTAN\SUMATRIPTAN SUCCINATE
     Indication: MIGRAINE
  4. CYMBALTA [Suspect]
     Active Substance: DULOXETINE HYDROCHLORIDE
     Indication: ANXIETY DISORDER
     Dosage: 30 MG, UNK
     Dates: start: 201205
  5. CYMBALTA [Suspect]
     Active Substance: DULOXETINE HYDROCHLORIDE
     Dosage: 60 MG, QD
     Dates: start: 20120715
  6. SODIUM BICARBONATE. [Concomitant]
     Active Substance: SODIUM BICARBONATE
     Indication: HIATUS HERNIA
  7. HYDROCODONE [Concomitant]
     Active Substance: HYDROCODONE
     Indication: RHEUMATIC DISORDER

REACTIONS (6)
  - Drug effect incomplete [Unknown]
  - Nausea [Recovered/Resolved]
  - Nocturia [Unknown]
  - Constipation [Unknown]
  - Dyspnoea [Unknown]
  - Hypotension [Unknown]

NARRATIVE: CASE EVENT DATE: 20120716
